FAERS Safety Report 12521301 (Version 1)
Quarter: 2016Q3

REPORT INFORMATION
  Report Type: Report from Study
  Country: US (occurrence: US)
  Receive Date: 20160701
  Receipt Date: 20160701
  Transmission Date: 20161109
  Serious: Yes (Other)
  Sender: FDA-Public Use
  Company Number: US-JNJFOC-20160625666

PATIENT
  Age: 70 Year
  Sex: Male

DRUGS (14)
  1. IMBRUVICA [Suspect]
     Active Substance: IBRUTINIB
     Indication: MANTLE CELL LYMPHOMA
     Route: 048
     Dates: start: 20141127
  2. ULORIC [Concomitant]
     Active Substance: FEBUXOSTAT
  3. COUMADIN [Concomitant]
     Active Substance: WARFARIN SODIUM
  4. PULMICORT TURBUHALER [Concomitant]
     Active Substance: BUDESONIDE
  5. SIMVASTATIN. [Concomitant]
     Active Substance: SIMVASTATIN
  6. IVIGLOB EX [Concomitant]
     Active Substance: HUMAN IMMUNOGLOBULIN G
  7. TESTOSTERONE. [Concomitant]
     Active Substance: TESTOSTERONE
  8. HYDROCODONE [Concomitant]
     Active Substance: HYDROCODONE
  9. ASPIRIN. [Concomitant]
     Active Substance: ASPIRIN
  10. SALBUTAMOL SULFATE [Concomitant]
     Active Substance: ALBUTEROL SULFATE
  11. TYLENOL [Concomitant]
     Active Substance: ACETAMINOPHEN
  12. LISINOPRIL. [Concomitant]
     Active Substance: LISINOPRIL
  13. CYMBALTA [Concomitant]
     Active Substance: DULOXETINE HYDROCHLORIDE
  14. LASIX [Concomitant]
     Active Substance: FUROSEMIDE

REACTIONS (2)
  - Thrombosis [Unknown]
  - Ear infection [Unknown]

NARRATIVE: CASE EVENT DATE: 201605
